FAERS Safety Report 11809907 (Version 1)
Quarter: 2015Q4

REPORT INFORMATION
  Report Type: Spontaneous
  Country: US (occurrence: None)
  Receive Date: 20151207
  Receipt Date: 20151207
  Transmission Date: 20160305
  Serious: Yes (Other)
  Sender: FDA-Public Use
  Company Number: None

PATIENT
  Age: 77 Year
  Sex: Female
  Weight: 66.23 kg

DRUGS (2)
  1. CLOPIDOGREL [Suspect]
     Active Substance: CLOPIDOGREL BISULFATE
  2. HYDROCHOROTHIAZIDE 25 MG ^U^^128^ [Suspect]
     Active Substance: HYDROCHLOROTHIAZIDE
     Dosage: THERAPY?JUNE 11, 2015 UNITL THE SIDE EFFECT
     Dates: start: 20150611

REACTIONS (5)
  - Fluid overload [None]
  - Swelling [None]
  - Product commingling [None]
  - Contusion [None]
  - Drug administration error [None]
